FAERS Safety Report 5442350-6 (Version None)
Quarter: 2007Q3

REPORT INFORMATION
  Report Type: 
  Country: None (occurrence: None)
  Receive Date: 20070904
  Receipt Date: 20070823
  Transmission Date: 20080115
  Serious: Yes (Other)
  Sender: FDA-Public Use
  Company Number: FR-PFIZER INC-2007070895

PATIENT
  Sex: Male

DRUGS (1)
  1. LYRICA [Suspect]
     Indication: NEURALGIA
     Dates: start: 20070724, end: 20070801

REACTIONS (4)
  - EPILEPSY [None]
  - LOSS OF CONSCIOUSNESS [None]
  - SHOCK [None]
  - SOMNOLENCE [None]
